FAERS Safety Report 10311653 (Version 2)
Quarter: 2014Q3

REPORT INFORMATION
  Report Type: Spontaneous
  Country: AU (occurrence: AU)
  Receive Date: 20140717
  Receipt Date: 20140723
  Transmission Date: 20150326
  Serious: Yes (Other)
  Sender: FDA-Public Use
  Company Number: AU-ALLERGAN-1415691US

PATIENT
  Age: 58 Year
  Sex: Male
  Weight: 78 kg

DRUGS (2)
  1. BLEPH-10 [Suspect]
     Active Substance: SULFACETAMIDE SODIUM
     Indication: PANOPHTHALMITIS
  2. BLEPH-10 [Suspect]
     Active Substance: SULFACETAMIDE SODIUM
     Indication: CONJUNCTIVITIS
     Dosage: ONE DOSE UNSPECIFIED ONE TIME
     Route: 047
     Dates: start: 19850122

REACTIONS (1)
  - Erythema multiforme [Recovered/Resolved with Sequelae]
